FAERS Safety Report 8933918 (Version 1)
Quarter: 2012Q4

REPORT INFORMATION
  Report Type: 
  Country: CH (occurrence: CH)
  Receive Date: 20121129
  Receipt Date: 20121129
  Transmission Date: 20130627
  Serious: Yes (Hospitalization)
  Sender: FDA-Public Use
  Company Number: CH-ASTRAZENECA-2012SE88783

PATIENT
  Age: 90 Year
  Sex: Male

DRUGS (12)
  1. BRILIQUE [Suspect]
     Indication: ACUTE MYOCARDIAL INFARCTION
     Route: 048
     Dates: start: 20120421
  2. PLAVIX [Suspect]
     Indication: ACUTE MYOCARDIAL INFARCTION
     Route: 048
     Dates: start: 20120421, end: 20120421
  3. ACETYLSALICYLIC ACID [Concomitant]
     Indication: ACUTE MYOCARDIAL INFARCTION
     Route: 040
     Dates: start: 20120421, end: 20120421
  4. SORTIS [Concomitant]
     Route: 048
  5. NORVASC [Concomitant]
     Route: 048
  6. TRIATEC [Concomitant]
     Route: 048
  7. CONCOR [Concomitant]
     Route: 048
  8. ASPIRIN CARDIO [Concomitant]
     Route: 048
  9. NITRODERM [Concomitant]
     Route: 062
  10. NITROGLYCERIN [Concomitant]
     Route: 048
  11. CORVATON [Concomitant]
     Route: 048
     Dates: start: 20120421
  12. ARIXTRA [Concomitant]
     Route: 058
     Dates: start: 20120421, end: 20120421

REACTIONS (3)
  - Anaemia [Recovered/Resolved]
  - Cardiovascular disorder [Recovered/Resolved]
  - Gastrointestinal haemorrhage [Recovered/Resolved]
